FAERS Safety Report 7503377-3 (Version None)
Quarter: 2011Q2

REPORT INFORMATION
  Report Type: 
  Country: None (occurrence: None)
  Receive Date: 20110525
  Receipt Date: 20110517
  Transmission Date: 20111010
  Serious: Yes (Congenital Anomaly)
  Sender: FDA-Public Use
  Company Number: A0917837A

PATIENT
  Sex: Male

DRUGS (1)
  1. PAXIL [Suspect]
     Route: 064

REACTIONS (6)
  - TRANSPOSITION OF THE GREAT VESSELS [None]
  - AORTIC VALVE ATRESIA [None]
  - CONGENITAL PULMONARY VALVE ATRESIA [None]
  - DOUBLE OUTLET RIGHT VENTRICLE [None]
  - CARDIAC VENTRICULAR DISORDER [None]
  - DRUG EXPOSURE DURING PREGNANCY [None]
